FAERS Safety Report 23100029 (Version 1)
Quarter: 2023Q4

REPORT INFORMATION
  Report Type: Spontaneous
  Country: US (occurrence: None)
  Receive Date: 20231023
  Receipt Date: 20231023
  Transmission Date: 20240110
  Serious: Yes (Hospitalization)
  Sender: FDA-Public Use
  Company Number: None

PATIENT
  Age: 67 Year
  Sex: Female

DRUGS (1)
  1. GLATIRAMER [Suspect]
     Active Substance: GLATIRAMER
     Indication: Multiple sclerosis
     Dosage: OTHER FREQUENCY : 3 TIMES PER WEEK;?
     Route: 058

REACTIONS (2)
  - Syncope [None]
  - Pain [None]

NARRATIVE: CASE EVENT DATE: 20231005
